FAERS Safety Report 9477798 (Version 2)
Quarter: 2013Q3

REPORT INFORMATION
  Report Type: Report from Study
  Country: IL (occurrence: IL)
  Receive Date: 20130827
  Receipt Date: 20130827
  Transmission Date: 20140515
  Serious: Yes (Hospitalization, Other)
  Sender: FDA-Public Use
  Company Number: IL-BRISTOL-MYERS SQUIBB COMPANY-14696694

PATIENT
  Age: 48 Year
  Sex: Male

DRUGS (3)
  1. COUMADIN [Suspect]
     Indication: EMBOLISM
     Dosage: NO OF COURSE:2?25JUN09
     Route: 048
     Dates: start: 20090605, end: 20090606
  2. ENOXAPARIN [Suspect]
     Indication: EMBOLISM
     Dosage: NO.OF COURSES:04?7JUN09-28JUN09
     Route: 058
     Dates: start: 20090605, end: 20090607
  3. PLACEBO [Suspect]
     Indication: EMBOLISM
     Dosage: WITH APIX ARM:05JUN-07JUN09(PO);ENOX ARM:05JUN-07JUN09(SC);COUMADIN ARM:05JUN-06JUN09(ORAL).
     Dates: start: 20090605, end: 200906

REACTIONS (1)
  - Vena cava thrombosis [Recovered/Resolved]
